FAERS Safety Report 6607514-4 (Version None)
Quarter: 2010Q1

REPORT INFORMATION
  Report Type: 
  Country: None (occurrence: None)
  Receive Date: 20100301
  Receipt Date: 20100217
  Transmission Date: 20100710
  Serious: Yes (Hospitalization)
  Sender: FDA-Public Use
  Company Number: PHEH2009US17173

PATIENT
  Sex: Female

DRUGS (3)
  1. EXJADE [Suspect]
     Indication: IRON OVERLOAD
     Dosage: 1500 MG DAILY
     Route: 048
  2. EXJADE [Suspect]
     Dosage: 500 MG PER DAY
     Route: 048
  3. EXJADE [Suspect]
     Dosage: 1000 MG PER DAY
     Route: 048

REACTIONS (2)
  - BACK PAIN [None]
  - BLOOD IRON INCREASED [None]
